FAERS Safety Report 19195244 (Version 1)
Quarter: 2021Q2

REPORT INFORMATION
  Report Type: Spontaneous
  Country: CA (occurrence: CA)
  Receive Date: 20210429
  Receipt Date: 20210429
  Transmission Date: 20210717
  Serious: Yes (Other)
  Sender: FDA-Public Use
  Company Number: CA-SAMSUNG BIOEPIS-SB-2021-10227

PATIENT
  Age: 48 Year
  Sex: Female

DRUGS (1)
  1. INFLIXIMAB [Suspect]
     Active Substance: INFLIXIMAB
     Indication: CROHN^S DISEASE
     Route: 042

REACTIONS (15)
  - Abnormal behaviour [Unknown]
  - Mental disorder [Unknown]
  - Paranoia [Unknown]
  - Sleep apnoea syndrome [Unknown]
  - Intentional product use issue [Unknown]
  - Feeding disorder [Unknown]
  - Stress [Unknown]
  - Hypertension [Unknown]
  - Malaise [Unknown]
  - Poor venous access [Unknown]
  - Off label use [Unknown]
  - Insomnia [Unknown]
  - Anxiety [Unknown]
  - Delusion [Unknown]
  - Nasal congestion [Unknown]
